FAERS Safety Report 14902684 (Version 1)
Quarter: 2018Q2

REPORT INFORMATION
  Report Type: Spontaneous
  Country: US (occurrence: US)
  Receive Date: 20180516
  Receipt Date: 20180516
  Transmission Date: 20180711
  Serious: No
  Sender: FDA-Public Use
  Company Number: US-SA-2017SA088618

PATIENT
  Sex: Female

DRUGS (2)
  1. LANTUS [Suspect]
     Active Substance: INSULIN GLARGINE
     Indication: TYPE 2 DIABETES MELLITUS
     Route: 051
     Dates: end: 20160323
  2. HUMULIN R [Suspect]
     Active Substance: INSULIN HUMAN
     Indication: TYPE 2 DIABETES MELLITUS
     Route: 065
     Dates: start: 2013, end: 20160323

REACTIONS (3)
  - Blood glucose abnormal [Recovering/Resolving]
  - Blood glucose increased [Recovering/Resolving]
  - Blood glucose decreased [Recovering/Resolving]

NARRATIVE: CASE EVENT DATE: 201507
